FAERS Safety Report 20622887 (Version 1)
Quarter: 2022Q1

REPORT INFORMATION
  Report Type: Spontaneous
  Country: ES (occurrence: ES)
  Receive Date: 20220322
  Receipt Date: 20220322
  Transmission Date: 20220424
  Serious: Yes (Other)
  Sender: FDA-Public Use
  Company Number: ES-NOVARTISPH-NVSC2021ES247425

PATIENT
  Sex: Female
  Weight: 124 kg

DRUGS (1)
  1. GILENYA [Suspect]
     Active Substance: FINGOLIMOD HYDROCHLORIDE
     Indication: Relapsing-remitting multiple sclerosis
     Dosage: 0.5 MG (0.5MG/1/24HR)
     Route: 048
     Dates: start: 20120201, end: 20211026

REACTIONS (2)
  - Uterine polyp [Unknown]
  - Maternal exposure during pregnancy [Unknown]
